FAERS Safety Report 5434811-0 (Version None)
Quarter: 2007Q3

REPORT INFORMATION
  Report Type: 
  Country: None (occurrence: None)
  Receive Date: 20070827
  Receipt Date: 20070827
  Transmission Date: 20080115
  Serious: Yes (Hospitalization)
  Sender: FDA-Public Use
  Company Number: None

PATIENT
  Age: 62 Year
  Sex: Female
  Weight: 55 kg

DRUGS (5)
  1. ACYCLOVIR [Suspect]
     Indication: PROPHYLAXIS
     Dosage: 400MG, BID, PO
     Route: 048
     Dates: start: 20070727, end: 20070806
  2. ZOFRAN [Concomitant]
  3. VELCADE [Concomitant]
  4. OXYCODONE HCL [Concomitant]
  5. DILAUDID [Concomitant]

REACTIONS (5)
  - DISEASE PROGRESSION [None]
  - ILL-DEFINED DISORDER [None]
  - JOINT EFFUSION [None]
  - NUCLEAR MAGNETIC RESONANCE IMAGING ABNORMAL [None]
  - RENAL FAILURE [None]
